FAERS Safety Report 11205504 (Version 1)
Quarter: 2015Q2

REPORT INFORMATION
  Report Type: Spontaneous
  Country: CN (occurrence: CN)
  Receive Date: 20150622
  Receipt Date: 20150622
  Transmission Date: 20150821
  Serious: Yes (Hospitalization)
  Sender: FDA-Public Use
  Company Number: CN-009507513-1501CHN009918

PATIENT
  Age: 68 Year
  Sex: Male
  Weight: 73 kg

DRUGS (40)
  1. EMEND [Suspect]
     Active Substance: APREPITANT
     Dosage: 80 MG, QD
     Route: 048
     Dates: start: 20150109, end: 20150109
  2. PANTOPRAZOLE [Concomitant]
     Active Substance: PANTOPRAZOLE SODIUM
     Indication: ANTACID THERAPY
     Dosage: 40 MG, QD
     Route: 041
     Dates: start: 20141223
  3. SHEN YI JIAO NANG [Concomitant]
     Dosage: BID, TOTAL DAILY DOSE 20MG
     Route: 048
     Dates: start: 20150109, end: 20150114
  4. SHENG XUE NING PIAN [Concomitant]
     Dosage: BID, TOTAL DAILY DOSE 1G
     Route: 048
     Dates: start: 20150106
  5. DEXAMETHASONE. [Concomitant]
     Active Substance: DEXAMETHASONE
     Dosage: BID, TOTAL DAILY DOSE 16MG
     Route: 048
     Dates: start: 20150106
  6. CODEINE [Concomitant]
     Active Substance: CODEINE
     Dosage: 60 MG, QD
     Route: 048
     Dates: start: 20150103, end: 20150103
  7. PYRIDOXINE [Concomitant]
     Active Substance: PYRIDOXINE
     Dosage: 100 MG, QD
     Route: 041
     Dates: start: 20150107, end: 20150109
  8. DEXAMETHASONE. [Concomitant]
     Active Substance: DEXAMETHASONE
     Indication: PROPHYLAXIS OF NAUSEA AND VOMITING
     Dosage: 10 MG, QD
     Route: 041
     Dates: start: 20150107, end: 20150109
  9. DOXOFYLLINE [Concomitant]
     Active Substance: DOXOFYLLINE
     Dosage: 0.2 G, Q12H
     Route: 041
     Dates: start: 20141222, end: 20150106
  10. AMBROXOL HYDROCHLORIDE [Concomitant]
     Active Substance: AMBROXOL HYDROCHLORIDE
     Indication: PRODUCTIVE COUGH
     Dosage: 30 MG, Q12H
     Route: 041
     Dates: start: 20141222
  11. POTASSIUM CHLORIDE. [Concomitant]
     Active Substance: POTASSIUM CHLORIDE
     Dosage: 10 ML, QD
     Route: 041
     Dates: start: 20150107, end: 20150109
  12. INSULIN [Concomitant]
     Active Substance: INSULIN NOS
     Dosage: 16 IU, QD
     Route: 041
     Dates: start: 20141231, end: 20150105
  13. SHENG XUE NING PIAN [Concomitant]
     Dosage: UNK UNK, TID
     Route: 048
     Dates: start: 20150104, end: 20150105
  14. DIPHENHYDRAMINE HYDROCHLORIDE. [Concomitant]
     Active Substance: DIPHENHYDRAMINE HYDROCHLORIDE
     Indication: PROPHYLAXIS OF NAUSEA AND VOMITING
     Dosage: 20 MG, QD
     Route: 042
     Dates: start: 20150107, end: 20150107
  15. IPRATROPIUM BROMIDE. [Concomitant]
     Active Substance: IPRATROPIUM BROMIDE
     Indication: ASTHMA
     Dosage: STRENGTH: 2, BID
     Dates: start: 20141223, end: 20141225
  16. DOCETAXEL. [Concomitant]
     Active Substance: DOCETAXEL
     Indication: CHEMOTHERAPY
     Dosage: 140 MG, QD/ 140MG D1
     Route: 041
     Dates: start: 20150107, end: 20150107
  17. DOXOFYLLINE [Concomitant]
     Active Substance: DOXOFYLLINE
     Indication: COUGH
     Dosage: 0.2 G, Q12H
     Route: 041
     Dates: start: 20150112, end: 20150114
  18. CODEINE [Concomitant]
     Active Substance: CODEINE
     Dosage: 90 MG, QD
     Route: 048
     Dates: start: 20150101, end: 20150101
  19. DEXAMETHASONE. [Concomitant]
     Active Substance: DEXAMETHASONE
     Indication: PROPHYLAXIS OF NAUSEA AND VOMITING
     Dosage: 5 MG, QD
     Route: 041
     Dates: start: 20150105, end: 20150105
  20. METHOXYPHENAMINE HYDROCHLORIDE [Concomitant]
     Active Substance: METHOXYPHENAMINE HYDROCHLORIDE
     Indication: ASTHMA
  21. PIPERACILLIN AND TAZOBACTAM [Concomitant]
     Active Substance: PIPERACILLIN SODIUM\TAZOBACTAM SODIUM
     Dosage: UNK, Q8H
     Route: 041
     Dates: start: 20141226
  22. POTASSIUM CHLORIDE. [Concomitant]
     Active Substance: POTASSIUM CHLORIDE
     Dosage: 20 ML, QD
     Route: 041
     Dates: start: 20141231, end: 20150105
  23. CISPLATIN. [Concomitant]
     Active Substance: CISPLATIN
     Indication: CHEMOTHERAPY
     Dosage: 50 MG, QD/ 50MG D1-D2
     Route: 041
     Dates: start: 20150107, end: 20150108
  24. CISPLATIN. [Concomitant]
     Active Substance: CISPLATIN
     Dosage: 40 MG, QD/ 40 MG D3
     Route: 041
     Dates: start: 20150109, end: 20150109
  25. AZASETRON [Concomitant]
     Active Substance: AZASETRON
     Indication: PROPHYLAXIS OF NAUSEA AND VOMITING
     Dosage: 10 MG, QD
     Route: 041
     Dates: start: 20150107, end: 20150108
  26. DOXOFYLLINE [Concomitant]
     Active Substance: DOXOFYLLINE
     Dosage: 0.2 G, Q12H
     Route: 041
     Dates: start: 20150107, end: 20150112
  27. NIFEDIPINE. [Concomitant]
     Active Substance: NIFEDIPINE
     Indication: HYPERTENSION
     Dosage: 30 MG, QD
     Route: 048
     Dates: start: 20150104
  28. SHEN YI JIAO NANG [Concomitant]
     Indication: IMMUNISATION
     Dosage: TID, TOTAL DAILY DOSE 30MG
     Route: 048
     Dates: start: 20150104, end: 20150105
  29. BUDESONIDE. [Concomitant]
     Active Substance: BUDESONIDE
     Indication: ASTHMA
     Dosage: UNK, BID
     Dates: start: 20141225, end: 20141228
  30. EMEND [Suspect]
     Active Substance: APREPITANT
     Dosage: 80 MG, QD
     Route: 048
     Dates: start: 20150108, end: 20150108
  31. AMBROXOL HYDROCHLORIDE [Concomitant]
     Active Substance: AMBROXOL HYDROCHLORIDE
     Dosage: 30 MG, QD
     Route: 041
     Dates: start: 20150112, end: 20150114
  32. POTASSIUM CHLORIDE. [Concomitant]
     Active Substance: POTASSIUM CHLORIDE
     Dosage: 10 ML, QD
     Route: 041
     Dates: start: 20150111, end: 20150111
  33. CODEINE [Concomitant]
     Active Substance: CODEINE
     Dosage: 60 MG, QD
     Route: 048
     Dates: start: 20150105, end: 20150105
  34. IPRATROPIUM BROMIDE. [Concomitant]
     Active Substance: IPRATROPIUM BROMIDE
     Indication: ASTHMA
  35. EMEND [Suspect]
     Active Substance: APREPITANT
     Indication: PROPHYLAXIS OF NAUSEA AND VOMITING
     Dosage: 125 MG, QD
     Route: 048
     Dates: start: 20150107, end: 20150107
  36. AMBROXOL HYDROCHLORIDE [Concomitant]
     Active Substance: AMBROXOL HYDROCHLORIDE
     Dosage: 30 MG, QD
     Route: 041
     Dates: start: 20150110, end: 20150110
  37. DEXTROMETHORPHAN HYDROBROMIDE (+) GUAIFENESIN [Concomitant]
     Dosage: TID, TOTAL DAILY DOSE 600MG
     Route: 048
     Dates: start: 20141225
  38. METHOXYPHENAMINE HYDROCHLORIDE [Concomitant]
     Active Substance: METHOXYPHENAMINE HYDROCHLORIDE
     Indication: ASTHMA
     Dosage: UNK, TID
     Route: 048
     Dates: start: 20141222, end: 20141225
  39. BUDESONIDE. [Concomitant]
     Active Substance: BUDESONIDE
     Indication: ASTHMA
  40. LEUCOGEN (ETHYL-4-CARBOXY ALPHA-PHENYL-1,2-THIAZOLIDINE ACETATE) [Concomitant]
     Dosage: UNK, TID
     Route: 048
     Dates: start: 20150109, end: 20150114

REACTIONS (4)
  - Constipation [Recovered/Resolved]
  - Glaucoma [Recovering/Resolving]
  - Hypokalaemia [Recovered/Resolved]
  - Hepatic function abnormal [Recovered/Resolved]

NARRATIVE: CASE EVENT DATE: 20150108
